FAERS Safety Report 12928823 (Version 1)
Quarter: 2016Q4

REPORT INFORMATION
  Report Type: Spontaneous
  Country: IT (occurrence: IT)
  Receive Date: 20161110
  Receipt Date: 20161110
  Transmission Date: 20170207
  Serious: Yes (Other)
  Sender: FDA-Public Use
  Company Number: IT-WARNER CHILCOTT, LLC-1059401

PATIENT
  Age: 62 Year
  Sex: Female

DRUGS (2)
  1. OPTINATE [Suspect]
     Active Substance: RISEDRONATE SODIUM
     Indication: OSTEOPOROSIS
     Route: 048
  2. OPTINATE [Suspect]
     Active Substance: RISEDRONATE SODIUM
     Route: 048
     Dates: start: 2013

REACTIONS (2)
  - Hyperpyrexia [Recovered/Resolved]
  - Spinal pain [Recovered/Resolved]

NARRATIVE: CASE EVENT DATE: 20130401
